FAERS Safety Report 7874863-1 (Version None)
Quarter: 2011Q4

REPORT INFORMATION
  Report Type: 
  Country: None (occurrence: None)
  Receive Date: 20111031
  Receipt Date: 20111019
  Transmission Date: 20120403
  Serious: No
  Sender: FDA-Public Use
  Company Number: US-JNJFOC-20111008566

PATIENT
  Sex: Male

DRUGS (2)
  1. INVEGA SUSTENNA [Suspect]
     Indication: PRODUCT USED FOR UNKNOWN INDICATION
     Route: 030
     Dates: start: 20111018
  2. INVEGA SUSTENNA [Suspect]
     Route: 030
     Dates: start: 20111011

REACTIONS (2)
  - PAIN IN EXTREMITY [None]
  - TREMOR [None]
